FAERS Safety Report 8155523-9 (Version None)
Quarter: 2012Q1

REPORT INFORMATION
  Report Type: 
  Country: None (occurrence: None)
  Receive Date: 20120222
  Receipt Date: 20120217
  Transmission Date: 20120608
  Serious: Yes (Life-Threatening, Hospitalization)
  Sender: FDA-Public Use
  Company Number: US-BAYER-2011-120496

PATIENT
  Age: 45 Year
  Sex: Female
  Weight: 69.388 kg

DRUGS (3)
  1. YASMIN [Suspect]
  2. YAZ [Suspect]
  3. DROSPIRENONE AND ETHINYL ESTRADIOL [Suspect]

REACTIONS (6)
  - THROMBOSIS [None]
  - PULMONARY EMBOLISM [None]
  - ANHEDONIA [None]
  - ANXIETY [None]
  - PAIN [None]
  - GENERAL PHYSICAL HEALTH DETERIORATION [None]
